FAERS Safety Report 9099365 (Version 3)
Quarter: 2013Q1

REPORT INFORMATION
  Report Type: Spontaneous
  Country: GB (occurrence: GB)
  Receive Date: 20130214
  Receipt Date: 20130225
  Transmission Date: 20140127
  Serious: Yes (Death, Other)
  Sender: FDA-Public Use
  Company Number: PHFR2013GB001195

PATIENT
  Age: 52 Year
  Sex: Female

DRUGS (7)
  1. CLOZARIL [Suspect]
     Indication: SCHIZOPHRENIA
     Dosage: UNK
     Route: 048
     Dates: start: 20010701
  2. TETRABENAZINE [Concomitant]
     Dosage: 25 MG, HALF TO BE TAKEN TWICE A DAY
     Dates: start: 20130122
  3. CITALOPRAM HYDROCHLORIDE [Concomitant]
     Dosage: 8 DRP, AT MORNING
     Dates: start: 20121208
  4. HYOSCINE HYDROBROMIDE [Concomitant]
     Dosage: 1.5 MG, Q72H
     Route: 062
     Dates: start: 20130122
  5. ASPIRIN [Concomitant]
     Dosage: 75 MG, DAILY
     Dates: start: 20130122
  6. OMEPRAZOLE [Concomitant]
     Dosage: 20 MG, ONCE DAILY
     Dates: start: 20130122
  7. SIMVASTATIN [Concomitant]
     Dosage: 40 MG, ONE TO BE TAKEN  AT NIGHT
     Dates: start: 20130122

REACTIONS (6)
  - Death [Fatal]
  - Huntington^s disease [Unknown]
  - Bronchopneumonia [Unknown]
  - Lower respiratory tract infection [Unknown]
  - White blood cell count increased [Unknown]
  - Neutrophil count increased [Unknown]
